FAERS Safety Report 15760437 (Version 1)
Quarter: 2018Q4

REPORT INFORMATION
  Report Type: Spontaneous
  Country: TN (occurrence: TN)
  Receive Date: 20181226
  Receipt Date: 20181226
  Transmission Date: 20190205
  Serious: Yes (Hospitalization)
  Sender: FDA-Public Use
  Company Number: TN-NOVAST LABORATORIES, LTD-TN-2018NOV000434

PATIENT
  Age: 55 Year
  Sex: Female

DRUGS (2)
  1. CARISOPRODOL\ASPIRIN [Suspect]
     Active Substance: ASPIRIN\CARISOPRODOL
     Indication: PRODUCT USED FOR UNKNOWN INDICATION
     Dosage: 1 DF, UNK
     Route: 048
     Dates: start: 2013
  2. CARISOPRODOL\ASPIRIN [Suspect]
     Active Substance: ASPIRIN\CARISOPRODOL
     Dosage: 1 DF, UNK
     Route: 048
     Dates: start: 2014

REACTIONS (1)
  - Type I hypersensitivity [Unknown]
